FAERS Safety Report 7361617-8 (Version None)
Quarter: 2011Q1

REPORT INFORMATION
  Report Type: 
  Country: None (occurrence: None)
  Receive Date: 20110318
  Receipt Date: 20110309
  Transmission Date: 20110831
  Serious: Yes (Hospitalization, Other)
  Sender: FDA-Public Use
  Company Number: US-JNJFOC-20110304810

PATIENT
  Sex: Male
  Weight: 108.86 kg

DRUGS (15)
  1. VALPROIC ACID [Concomitant]
     Indication: LIVER DISORDER
     Route: 048
  2. ASPIRIN [Concomitant]
     Indication: GENERAL PHYSICAL CONDITION
     Route: 048
  3. RISPERDAL CONSTA [Suspect]
     Indication: PSYCHOTIC DISORDER
     Route: 030
  4. ACETAMINOPHEN [Concomitant]
     Indication: PAIN
     Route: 048
  5. RISPERDAL CONSTA [Suspect]
     Indication: CONFUSIONAL STATE
     Route: 030
  6. RISPERDAL [Suspect]
     Indication: CONFUSIONAL STATE
     Route: 048
  7. RISPERDAL [Suspect]
     Indication: PSYCHOTIC DISORDER
     Route: 048
  8. NADOLOL [Concomitant]
     Indication: HYPERTENSION
     Route: 048
  9. BUSPAR [Concomitant]
     Indication: ELEVATED MOOD
     Route: 048
  10. LISINOPRIL [Concomitant]
     Indication: HYPERTENSION
     Route: 048
  11. STARLIX [Concomitant]
     Indication: TYPE 2 DIABETES MELLITUS
     Route: 048
  12. TRAZODONE HCL [Concomitant]
     Indication: SLEEP DISORDER
     Route: 048
  13. COGENTIN [Concomitant]
     Indication: ADVERSE DRUG REACTION
     Route: 048
  14. CLOZAPINE [Suspect]
     Indication: PSYCHOTIC DISORDER
     Route: 048
  15. PRILOSEC [Concomitant]
     Indication: GASTROOESOPHAGEAL REFLUX DISEASE
     Route: 065

REACTIONS (10)
  - HYPERHIDROSIS [None]
  - MUSCLE RIGIDITY [None]
  - ABNORMAL LOSS OF WEIGHT [None]
  - DIZZINESS [None]
  - AMMONIA INCREASED [None]
  - AMNESIA [None]
  - FALL [None]
  - LOSS OF CONSCIOUSNESS [None]
  - CLONIC CONVULSION [None]
  - HYDROCEPHALUS [None]
